FAERS Safety Report 5889127-5 (Version None)
Quarter: 2008Q3

REPORT INFORMATION
  Report Type: 
  Country: None (occurrence: None)
  Receive Date: 20080919
  Receipt Date: 20080909
  Transmission Date: 20090109
  Serious: Yes (Hospitalization)
  Sender: FDA-Public Use
  Company Number: US-BAYER-US-2006-006279

PATIENT
  Age: 18 Year
  Sex: Female
  Weight: 54 kg

DRUGS (1)
  1. YASMIN [Suspect]
     Indication: ORAL CONTRACEPTION
     Route: 048
     Dates: start: 20060301, end: 20060315

REACTIONS (6)
  - CHEST PAIN [None]
  - DEHYDRATION [None]
  - HEADACHE [None]
  - RED BLOOD CELL SEDIMENTATION RATE INCREASED [None]
  - STEVENS-JOHNSON SYNDROME [None]
  - VULVOVAGINAL CANDIDIASIS [None]
